FAERS Safety Report 5869354-3 (Version None)
Quarter: 2008Q3

REPORT INFORMATION
  Report Type: 
  Country: None (occurrence: None)
  Receive Date: 20080903
  Receipt Date: 20080826
  Transmission Date: 20090109
  Serious: Yes (Other)
  Sender: FDA-Public Use
  Company Number: US-GENENTECH-266994

PATIENT
  Age: 63 Year
  Sex: Male

DRUGS (5)
  1. BEVACIZUMAB [Suspect]
     Indication: COLON CANCER
     Dosage: 5 MG/KG, Q2W
     Dates: start: 20050922, end: 20060831
  2. OXALIPLATIN [Concomitant]
     Indication: DRUG USE FOR UNKNOWN INDICATION
     Dosage: 85 MG/M2, DAY 1
     Route: 042
  3. LEUCOVORIN CALCIUM [Concomitant]
     Indication: DRUG USE FOR UNKNOWN INDICATION
     Dosage: 400 MG/M2, DAY 1
     Route: 042
  4. FLUOROURACIL [Concomitant]
     Indication: DRUG USE FOR UNKNOWN INDICATION
     Dosage: 400 MG/M2, DAY 1
     Route: 040
  5. FLUOROURACIL [Concomitant]
     Dosage: 2400 MG/M2, D 1+2 Q14 D X 12 CYCLES
     Route: 042

REACTIONS (2)
  - OTITIS EXTERNA [None]
  - TYMPANIC MEMBRANE PERFORATION [None]
